FAERS Safety Report 5837236-9 (Version None)
Quarter: 2008Q3

REPORT INFORMATION
  Report Type: 
  Country: None (occurrence: None)
  Receive Date: 20080807
  Receipt Date: 20080730
  Transmission Date: 20090109
  Serious: Yes (Other)
  Sender: FDA-Public Use
  Company Number: US-BAYER-200813071BCC

PATIENT
  Age: 62 Year
  Sex: Male
  Weight: 132 kg

DRUGS (12)
  1. PHILLIPS MILK OF MAGNESIA CHERRY [Suspect]
     Indication: CONSTIPATION
     Dosage: TOTAL DAILY DOSE: 60 ML
     Route: 048
     Dates: start: 20080729
  2. ASPIRIN [Suspect]
     Indication: CARDIOVASCULAR EVENT PROPHYLAXIS
     Dosage: UNIT DOSE: 81 MG
     Route: 048
  3. INSULIN [Concomitant]
  4. GLUCOPHAGE [Concomitant]
     Dosage: TOTAL DAILY DOSE: 1500 MG
  5. GABAPENTIN [Concomitant]
     Dosage: TOTAL DAILY DOSE: 2700 MG
  6. PREVACID [Concomitant]
  7. LOSARTAN POTASSIUM [Concomitant]
  8. ATENOLOL [Concomitant]
  9. CRESTOR [Concomitant]
  10. MORPHINE [Concomitant]
     Dosage: TOTAL DAILY DOSE: 30 MG
  11. MORPHINE [Concomitant]
  12. PROZAC [Concomitant]

REACTIONS (1)
  - BLOOD GLUCOSE INCREASED [None]
